FAERS Safety Report 20466610 (Version 1)
Quarter: 2022Q1

REPORT INFORMATION
  Report Type: Spontaneous
  Country: CA (occurrence: CA)
  Receive Date: 20220213
  Receipt Date: 20220213
  Transmission Date: 20220423
  Serious: Yes (Other)
  Sender: FDA-Public Use
  Company Number: CA-PFIZER INC-202101877283

PATIENT
  Age: 64 Year
  Sex: Male

DRUGS (4)
  1. XELJANZ [Suspect]
     Active Substance: TOFACITINIB CITRATE
     Indication: Rheumatoid arthritis
     Dosage: 1 DF
     Dates: start: 2015, end: 2016
  2. CELEBREX [Concomitant]
     Active Substance: CELECOXIB
     Dosage: 200 MG, 2X/DAY
     Route: 048
     Dates: start: 1991
  3. ENBREL [Concomitant]
     Active Substance: ETANERCEPT
     Indication: Rheumatoid arthritis
     Dosage: 1 DF
  4. SULFASALAZINE [Concomitant]
     Active Substance: SULFASALAZINE
     Dosage: 1 DF

REACTIONS (5)
  - Pulmonary function test decreased [Not Recovered/Not Resolved]
  - Laboratory test abnormal [Recovered/Resolved]
  - Condition aggravated [Unknown]
  - Rheumatoid factor positive [Unknown]
  - Antibody test positive [Unknown]

NARRATIVE: CASE EVENT DATE: 20150101
